FAERS Safety Report 7822111-0 (Version None)
Quarter: 2011Q4

REPORT INFORMATION
  Report Type: 
  Country: None (occurrence: None)
  Receive Date: 20111018
  Receipt Date: 20111013
  Transmission Date: 20120403
  Serious: Yes (Hospitalization, Other)
  Sender: FDA-Public Use
  Company Number: DE-ABBOTT-11P-062-0865293-00

PATIENT
  Age: 52 Year
  Sex: Male
  Weight: 47 kg

DRUGS (1)
  1. HUMIRA [Suspect]
     Indication: CROHN'S DISEASE
     Route: 058
     Dates: start: 20080201, end: 20110601

REACTIONS (4)
  - SMALL INTESTINE OPERATION [None]
  - PNEUMONIA [None]
  - WOUND DEHISCENCE [None]
  - PLEURISY [None]
